FAERS Safety Report 8030985-6 (Version None)
Quarter: 2012Q1

REPORT INFORMATION
  Report Type: 
  Country: None (occurrence: None)
  Receive Date: 20120109
  Receipt Date: 20120103
  Transmission Date: 20120608
  Serious: Yes (Death, Other)
  Sender: FDA-Public Use
  Company Number: US-BAYER-200940399NA

PATIENT
  Age: 59 Year
  Sex: Female
  Weight: 117.42 kg

DRUGS (18)
  1. TRASYLOL [Suspect]
     Dosage: 50 ML/HOUR INFUSION
     Route: 042
     Dates: start: 20011117, end: 20011117
  2. PEPCID [Concomitant]
     Indication: PRODUCT USED FOR UNKNOWN INDICATION
     Dosage: 20 MG, UNK
     Route: 042
     Dates: start: 20011117
  3. RED BLOOD CELLS [Concomitant]
     Indication: PRODUCT USED FOR UNKNOWN INDICATION
     Dosage: UNK
     Route: 042
     Dates: start: 20011117
  4. CLINDAMYCIN [Concomitant]
  5. PROPOFOL [Concomitant]
     Indication: PRODUCT USED FOR UNKNOWN INDICATION
     Dosage: UNK
     Route: 042
     Dates: start: 20011117
  6. INSULIN [Concomitant]
  7. LASIX [Concomitant]
     Dosage: 40 TWICE DAILY
     Route: 048
  8. POTASSIUM CHLORIDE [Concomitant]
     Dosage: 20 TWO DAILY
     Route: 048
  9. CEFAZOLIN [Concomitant]
     Indication: PRODUCT USED FOR UNKNOWN INDICATION
     Dosage: 2 G, UNK
     Route: 042
     Dates: start: 20011117
  10. ACETYLSALICYLIC ACID SRT [Concomitant]
     Dosage: 325 DAILY
     Route: 048
  11. ACCUPRIL [Concomitant]
     Indication: PRODUCT USED FOR UNKNOWN INDICATION
     Dosage: 5 MG, UNK
     Route: 048
  12. CALCIUM CHLORIDE [Concomitant]
     Indication: PRODUCT USED FOR UNKNOWN INDICATION
     Dosage: 1.5 G, UNK
     Route: 042
     Dates: start: 20011117
  13. DOPAMINE HCL [Concomitant]
     Indication: PRODUCT USED FOR UNKNOWN INDICATION
     Dosage: UNK
     Route: 042
     Dates: start: 20011126
  14. CEFTAZIDIME [Concomitant]
  15. LANOXIN [Concomitant]
     Dosage: 0.25 DAILY
  16. TRASYLOL [Suspect]
     Indication: CORONARY ARTERY BYPASS
     Dosage: 200 ML LOADING DOSE
     Route: 042
     Dates: start: 20011117, end: 20011117
  17. TOPROL-XL [Concomitant]
     Indication: PRODUCT USED FOR UNKNOWN INDICATION
     Dosage: 50 MG, UNK
     Route: 048
  18. MANNITOL [Concomitant]
     Indication: PRODUCT USED FOR UNKNOWN INDICATION
     Dosage: 60 G, UNK
     Route: 042
     Dates: start: 20011117

REACTIONS (14)
  - FEAR [None]
  - EMOTIONAL DISTRESS [None]
  - EMOTIONAL DISORDER [None]
  - ANXIETY [None]
  - RENAL INJURY [None]
  - ANHEDONIA [None]
  - DEATH [None]
  - MULTI-ORGAN FAILURE [None]
  - RENAL FAILURE [None]
  - RENAL IMPAIRMENT [None]
  - STRESS [None]
  - UNEVALUABLE EVENT [None]
  - PAIN [None]
  - INJURY [None]
